FAERS Safety Report 8470453 (Version 4)
Quarter: 2012Q4

REPORT INFORMATION
  Report Type: 
  Country: US (occurrence: US)
  Receive Date: 20120321
  Receipt Date: 20121120
  Transmission Date: 20130627
  Serious: Yes (Other)
  Sender: FDA-Public Use
  Company Number: US-ASTRAZENECA-2012SE17823

PATIENT
  Age: 77 Year
  Sex: Female

DRUGS (2)
  1. ATACAND [Suspect]
     Route: 048
  2. ATACAND [Suspect]
     Route: 048

REACTIONS (4)
  - Familial tremor [Unknown]
  - Osteoarthritis [Unknown]
  - Cardiac disorder [Unknown]
  - Therapeutic response unexpected [Unknown]
